FAERS Safety Report 7287272-3 (Version None)
Quarter: 2011Q1

REPORT INFORMATION
  Report Type: 
  Country: None (occurrence: None)
  Receive Date: 20110211
  Receipt Date: 20110127
  Transmission Date: 20110831
  Serious: Yes (Other)
  Sender: FDA-Public Use
  Company Number: CA-ROCHE-756248

PATIENT
  Age: 84 Year
  Sex: Female

DRUGS (2)
  1. AVASTIN [Suspect]
     Route: 042
  2. AVASTIN [Suspect]
     Route: 042

REACTIONS (2)
  - TOXIC ANTERIOR SEGMENT SYNDROME [None]
  - ENDOPHTHALMITIS [None]
